FAERS Safety Report 15404956 (Version 4)
Quarter: 2018Q4

REPORT INFORMATION
  Report Type: Report from Study
  Country: CO (occurrence: CO)
  Receive Date: 20180920
  Receipt Date: 20181116
  Transmission Date: 20190204
  Serious: Yes (Hospitalization)
  Sender: FDA-Public Use
  Company Number: PHHO2018CO010290

PATIENT
  Age: 8 Year
  Sex: Female
  Weight: 27.5 kg

DRUGS (2)
  1. AIN457 [Suspect]
     Active Substance: SECUKINUMAB
     Indication: PSORIASIS
     Dosage: UNK
     Route: 058
     Dates: start: 20180613, end: 20180905
  2. AIN457 [Suspect]
     Active Substance: SECUKINUMAB
     Dosage: UNK
     Route: 058
     Dates: start: 20180926

REACTIONS (1)
  - Dermatopathic lymphadenopathy [Recovered/Resolved]

NARRATIVE: CASE EVENT DATE: 20180911
